FAERS Safety Report 8757574 (Version 1)
Quarter: 2012Q4

REPORT INFORMATION
  Report Type: 
  Country: BR (occurrence: BR)
  Receive Date: 20120828
  Receipt Date: 20120828
  Transmission Date: 20130627
  Serious: Yes (Hospitalization)
  Sender: FDA-Public Use
  Company Number: BR-PFIZER INC-2012206092

PATIENT
  Age: 51 Year
  Sex: Female
  Weight: 80 kg

DRUGS (1)
  1. LYRICA [Suspect]
     Indication: BACK DISORDER
     Dosage: two capsules of 75mg daily (unspecified frequency)
     Route: 048
     Dates: start: 20111122, end: 201207

REACTIONS (1)
  - Back disorder [Unknown]
